FAERS Safety Report 9793258 (Version 1)
Quarter: 2014Q1

REPORT INFORMATION
  Report Type: Spontaneous
  Country: IT (occurrence: IT)
  Receive Date: 20140102
  Receipt Date: 20140102
  Transmission Date: 20141002
  Serious: Yes (Hospitalization)
  Sender: FDA-Public Use
  Company Number: IT-TEVA-452778ISR

PATIENT
  Age: 80 Year
  Sex: Male

DRUGS (9)
  1. AMOXICILLIN W/CLAVULANIC ACID [Suspect]
     Indication: ANTIBIOTIC PROPHYLAXIS
     Dosage: 6.6 G TOTAL
     Route: 042
     Dates: start: 20131205, end: 20131210
  2. TOTALIP - 20 MG COMPRESSE - LABORATORI GUIDOTTI S.P.A . [Suspect]
     Indication: HYPERCHOLESTEROLAEMIA
     Dosage: 20 MG DAILY
     Route: 048
     Dates: end: 20131210
  3. RETACRIT [Concomitant]
     Indication: PRODUCT USED FOR UNKNOWN INDICATION
  4. CORDARONE [Concomitant]
     Indication: PRODUCT USED FOR UNKNOWN INDICATION
  5. ZANEDIP [Concomitant]
     Indication: PRODUCT USED FOR UNKNOWN INDICATION
  6. PLAQUENIL [Concomitant]
     Indication: PRODUCT USED FOR UNKNOWN INDICATION
  7. DILATREND [Concomitant]
     Indication: PRODUCT USED FOR UNKNOWN INDICATION
  8. TRIATEC [Concomitant]
     Indication: PRODUCT USED FOR UNKNOWN INDICATION
  9. CLEXANE [Concomitant]
     Indication: PRODUCT USED FOR UNKNOWN INDICATION

REACTIONS (3)
  - Blood creatine phosphokinase increased [Recovered/Resolved]
  - Myoglobin blood increased [Recovered/Resolved]
  - Renal failure acute [Recovered/Resolved]
